FAERS Safety Report 8135860-4 (Version None)
Quarter: 2012Q1

REPORT INFORMATION
  Report Type: 
  Country: None (occurrence: None)
  Receive Date: 20120214
  Receipt Date: 20120210
  Transmission Date: 20120608
  Serious: Yes (Hospitalization)
  Sender: FDA-Public Use
  Company Number: JP-GLAXOSMITHKLINE-B0762431A

PATIENT
  Sex: Male

DRUGS (15)
  1. DIOVAN [Concomitant]
     Dosage: 80MG PER DAY
     Route: 048
     Dates: start: 20110801
  2. GINGER [Concomitant]
  3. LANSOPRAZOLE [Concomitant]
     Dosage: 15MG PER DAY
     Route: 048
     Dates: start: 20070301, end: 20100901
  4. CENTELLA ASIATICA [Concomitant]
     Route: 048
     Dates: start: 20000501
  5. LAMIVUDINE, STAVUDINE, AND NEVIRAPINE [Suspect]
     Indication: HEPATIC CIRRHOSIS
     Dosage: 100MG PER DAY
     Route: 048
     Dates: start: 20010101, end: 20111101
  6. LAMIVUDINE, STAVUDINE, AND NEVIRAPINE [Suspect]
     Dosage: 50MG PER DAY
     Route: 048
     Dates: start: 20111102
  7. ANDROGRAPHIS PANICULATA [Concomitant]
  8. TERMINALIA ARJUNA [Concomitant]
     Route: 048
     Dates: start: 20000501
  9. FERROUS CITRATE [Concomitant]
     Dosage: 50MG PER DAY
     Route: 048
     Dates: start: 20100301, end: 20100901
  10. CHICORY [Concomitant]
     Route: 048
     Dates: start: 20000501
  11. EMBLICA OFFICINALIS [Concomitant]
  12. HEPSERA [Suspect]
     Indication: HEPATIC CIRRHOSIS
     Dosage: 10MG PER DAY
     Route: 048
     Dates: start: 20060501, end: 20111101
  13. HEPSERA [Suspect]
     Dosage: 5MG PER DAY
     Route: 048
     Dates: start: 20111102
  14. LIVACT [Concomitant]
     Dosage: 4IUAX PER DAY
     Route: 048
     Dates: start: 20000501
  15. URSO 250 [Concomitant]
     Dosage: 400MG PER DAY
     Route: 048
     Dates: start: 20000501

REACTIONS (9)
  - VARICES OESOPHAGEAL [None]
  - PANCYTOPENIA [None]
  - GLOMERULAR FILTRATION RATE DECREASED [None]
  - BLOOD CREATININE INCREASED [None]
  - ANAEMIA [None]
  - ANGIODYSPLASIA [None]
  - LARGE INTESTINAL HAEMORRHAGE [None]
  - RENAL IMPAIRMENT [None]
  - SPLENOMEGALY [None]
